FAERS Safety Report 10013816 (Version 1)
Quarter: 2014Q1

REPORT INFORMATION
  Report Type: Spontaneous
  Country: US (occurrence: US)
  Receive Date: 20140316
  Receipt Date: 20140316
  Transmission Date: 20141002
  Serious: Yes (Other)
  Sender: FDA-Public Use
  Company Number: US-B.I. PHARMACEUTICALS,INC./RIDGEFIELD-2014-BI-10586PF

PATIENT
  Sex: Female

DRUGS (6)
  1. SPIRIVA [Suspect]
     Indication: ASTHMA
     Route: 065
     Dates: start: 200712
  2. GENERIC SINGULAIR - MONTELUKAST [Suspect]
     Indication: ASTHMA
     Route: 065
  3. UNSPECIFIED [Concomitant]
     Indication: HYPERSENSITIVITY
     Route: 065
  4. UNSPECIFIED [Concomitant]
     Indication: SINUS DISORDER
     Route: 065
  5. PRILOSEC [Concomitant]
     Indication: GASTROOESOPHAGEAL REFLUX DISEASE
     Route: 065
  6. UNSPECIFIED [Concomitant]
     Indication: BLOOD PRESSURE
     Route: 065

REACTIONS (10)
  - Choking [Unknown]
  - Depressed level of consciousness [Unknown]
  - Somnolence [Not Recovered/Not Resolved]
  - Hypersensitivity [Not Recovered/Not Resolved]
  - Sinus disorder [Not Recovered/Not Resolved]
  - Sinusitis [Unknown]
  - Cough [Not Recovered/Not Resolved]
  - Dyspnoea [Unknown]
  - Somnolence [Unknown]
  - Drug ineffective [Unknown]
